FAERS Safety Report 16911157 (Version 1)
Quarter: 2019Q4

REPORT INFORMATION
  Report Type: Spontaneous
  Country: US (occurrence: US)
  Receive Date: 20190820
  Receipt Date: 20190820
  Transmission Date: 20200122
  Serious: Yes (Other)
  Sender: FDA-Public Use
  Company Number: None

PATIENT

DRUGS (1)
  1. PHENOBARBITAL. [Suspect]
     Active Substance: PHENOBARBITAL

REACTIONS (3)
  - Seizure [None]
  - Product substitution issue [None]
  - Pelvic pain [None]

NARRATIVE: CASE EVENT DATE: 201810
